FAERS Safety Report 14470369 (Version 3)
Quarter: 2018Q1

REPORT INFORMATION
  Report Type: Spontaneous
  Country: CA (occurrence: CA)
  Receive Date: 20180131
  Receipt Date: 20180227
  Transmission Date: 20180509
  Serious: Yes (Hospitalization, Other)
  Sender: FDA-Public Use
  Company Number: CA-JNJFOC-20180136434

PATIENT
  Age: 69 Year
  Sex: Male
  Weight: 70.3 kg

DRUGS (2)
  1. EVICEL [Suspect]
     Active Substance: FIBRINOGEN HUMAN\THROMBIN HUMAN
     Indication: VASCULAR PSEUDOANEURYSM
     Route: 050
     Dates: start: 20170705, end: 20170705
  2. EVICEL [Suspect]
     Active Substance: FIBRINOGEN HUMAN\THROMBIN HUMAN
     Indication: VASCULAR PSEUDOANEURYSM
     Route: 050
     Dates: start: 20170711, end: 20170711

REACTIONS (10)
  - Peripheral artery occlusion [Unknown]
  - Product use in unapproved indication [Unknown]
  - Gangrene [Unknown]
  - Extremity necrosis [Unknown]
  - Off label use [Unknown]
  - Gait inability [Unknown]
  - Pain in extremity [Unknown]
  - Peripheral ischaemia [Unknown]
  - Dry gangrene [Unknown]
  - Sensory loss [Unknown]

NARRATIVE: CASE EVENT DATE: 20170705
